FAERS Safety Report 16640562 (Version 1)
Quarter: 2019Q3

REPORT INFORMATION
  Report Type: Spontaneous
  Country: IT (occurrence: IT)
  Receive Date: 20190729
  Receipt Date: 20190729
  Transmission Date: 20191004
  Serious: Yes (Other)
  Sender: FDA-Public Use
  Company Number: IT-ACCORD-149058

PATIENT
  Age: 89 Year
  Sex: Female
  Weight: 50 kg

DRUGS (7)
  1. FERLIXIT [Concomitant]
     Active Substance: SODIUM FERRIC GLUCONATE COMPLEX
     Dosage: FERLIXIT 62.5
     Route: 048
     Dates: start: 20180904
  2. FUROSEMIDE. [Suspect]
     Active Substance: FUROSEMIDE
     Indication: HYPERTENSION
     Route: 048
     Dates: start: 20180518
  3. OMEPRAZOLE. [Concomitant]
     Active Substance: OMEPRAZOLE
     Route: 048
     Dates: start: 20180518
  4. NATECAL D3 [Concomitant]
     Active Substance: CALCIUM CARBONATE\CHOLECALCIFEROL
     Route: 048
     Dates: start: 20180518
  5. FOLIDAR [Concomitant]
     Dosage: FOLIDAR 15 MG
     Route: 048
     Dates: start: 20180525
  6. DOMPERIDONE [Concomitant]
     Active Substance: DOMPERIDONE
     Route: 048
     Dates: start: 20180518
  7. BISOPROLOL [Suspect]
     Active Substance: BISOPROLOL
     Indication: HYPERTENSION
     Route: 048
     Dates: start: 20180518

REACTIONS (3)
  - Depressed level of consciousness [Recovered/Resolved]
  - Hypertension [Recovered/Resolved]
  - Drug ineffective [Unknown]

NARRATIVE: CASE EVENT DATE: 20181002
